FAERS Safety Report 9306226 (Version 1)
Quarter: 2013Q2

REPORT INFORMATION
  Report Type: Spontaneous
  Country: GB (occurrence: None)
  Receive Date: 20130509
  Receipt Date: 20130509
  Transmission Date: 20140414
  Serious: Yes (Other)
  Sender: FDA-Public Use
  Company Number: QR70146-01

PATIENT
  Age: 68 Year
  Sex: Male

DRUGS (1)
  1. GAMMAPLEX [Suspect]
     Indication: PRODUCT USED FOR UNKNOWN INDICATION
     Route: 042
     Dates: start: 20130205

REACTIONS (4)
  - Chills [None]
  - Skin exfoliation [None]
  - Oedema [None]
  - Erythema [None]
